FAERS Safety Report 17943272 (Version 1)
Quarter: 2020Q2

REPORT INFORMATION
  Report Type: Spontaneous
  Country: DE (occurrence: DE)
  Receive Date: 20200625
  Receipt Date: 20200625
  Transmission Date: 20200714
  Serious: Yes (Other)
  Sender: FDA-Public Use
  Company Number: DE-TEVA-2020-DE-1790388

PATIENT
  Age: 40 Year
  Sex: Male

DRUGS (10)
  1. TACROLIMUS. [Suspect]
     Active Substance: TACROLIMUS
     Indication: IMMUNOSUPPRESSANT DRUG THERAPY
     Route: 065
  2. MEROPENEM. [Concomitant]
     Active Substance: MEROPENEM
     Indication: PNEUMONIA KLEBSIELLA
     Dosage: 6000 MILLIGRAM DAILY; THREE TIMES A DAY
     Route: 042
  3. COLISTIN [Concomitant]
     Active Substance: COLISTIN
     Indication: PNEUMONIA KLEBSIELLA
     Dosage: 3 MU DAILY; THREE TIMES A DAY
     Route: 055
  4. COTRIMOXAZOLE [Concomitant]
     Active Substance: SULFAMETHOXAZOLE\TRIMETHOPRIM
     Indication: PNEUMONIA KLEBSIELLA
     Dosage: 960 MILLIGRAM DAILY;
     Route: 048
  5. AVIBACTAM [Concomitant]
     Active Substance: AVIBACTAM
     Indication: PNEUMONIA KLEBSIELLA
     Dosage: 1000 MILLIGRAM DAILY;
     Route: 042
  6. LINEZOLID. [Concomitant]
     Active Substance: LINEZOLID
     Indication: PNEUMONIA KLEBSIELLA
     Route: 065
  7. MYCOPHENOLIC ACID. [Suspect]
     Active Substance: MYCOPHENOLIC ACID
     Indication: IMMUNOSUPPRESSANT DRUG THERAPY
     Route: 065
  8. TOBRAMYCIN. [Concomitant]
     Active Substance: TOBRAMYCIN
     Indication: PNEUMONIA KLEBSIELLA
     Route: 065
  9. CEFTAZIDIME. [Concomitant]
     Active Substance: CEFTAZIDIME
     Indication: PNEUMONIA KLEBSIELLA
     Route: 065
  10. PREDNISOLONE. [Suspect]
     Active Substance: PREDNISOLONE
     Indication: IMMUNOSUPPRESSANT DRUG THERAPY
     Route: 065

REACTIONS (2)
  - Klebsiella infection [Recovering/Resolving]
  - Pneumonia [Recovering/Resolving]
